FAERS Safety Report 20202283 (Version 1)
Quarter: 2021Q4

REPORT INFORMATION
  Report Type: Report from Study
  Country: US (occurrence: US)
  Receive Date: 20211217
  Receipt Date: 20211217
  Transmission Date: 20220303
  Serious: No
  Sender: FDA-Public Use
  Company Number: US-NOVARTISTESTPH-NVSC2021US288542

PATIENT
  Sex: Female

DRUGS (1)
  1. ILARIS [Suspect]
     Active Substance: CANAKINUMAB
     Indication: Cryopyrin associated periodic syndrome
     Dosage: 52 MG (52 MG EVERY 8 WEEKS)
     Route: 058

REACTIONS (5)
  - Rash pruritic [Unknown]
  - Influenza like illness [Unknown]
  - Ocular hyperaemia [Unknown]
  - Pyrexia [Unknown]
  - Product dose omission issue [Unknown]
